FAERS Safety Report 20838443 (Version 1)
Quarter: 2022Q2

REPORT INFORMATION
  Report Type: Spontaneous
  Country: US (occurrence: US)
  Receive Date: 20220517
  Receipt Date: 20220517
  Transmission Date: 20220721
  Serious: Yes (Hospitalization)
  Sender: FDA-Public Use
  Company Number: US-MYLANLABS-2022M1036415

PATIENT
  Sex: Female

DRUGS (6)
  1. TEMOZOLOMIDE [Suspect]
     Active Substance: TEMOZOLOMIDE
     Indication: Pineal parenchymal neoplasm malignant
     Dosage: UNK
     Route: 065
  2. CISPLATIN [Suspect]
     Active Substance: CISPLATIN
     Indication: Pineal parenchymal neoplasm malignant
     Dosage: UNK UNK, CYCLE, 9 CYCLES
     Route: 065
  3. IFOSFAMIDE [Suspect]
     Active Substance: IFOSFAMIDE
     Indication: Pineal parenchymal neoplasm malignant
     Dosage: UNK UNK, CYCLE, 9 CYCLES
     Route: 065
  4. MESNA [Suspect]
     Active Substance: MESNA
     Indication: Pineal parenchymal neoplasm malignant
     Dosage: UNK, CYCLE, 9 CYCLES
     Route: 065
  5. LOMUSTINE [Suspect]
     Active Substance: LOMUSTINE
     Indication: Pineal parenchymal neoplasm malignant
     Dosage: UNK UNK, CYCLE, 9 CYCLES
     Route: 065
  6. VINCRISTINE [Suspect]
     Active Substance: VINCRISTINE
     Indication: Pineal parenchymal neoplasm malignant
     Dosage: UNK UNK, CYCLE, 9 CYCLES
     Route: 065

REACTIONS (1)
  - Drug ineffective [Unknown]
